FAERS Safety Report 4677110-7 (Version None)
Quarter: 2005Q2

REPORT INFORMATION
  Report Type: 
  Country: None (occurrence: None)
  Receive Date: 20050525
  Receipt Date: 20050525
  Transmission Date: 20051028
  Serious: Yes (Hospitalization)
  Sender: FDA-Public Use
  Company Number: None

PATIENT
  Age: 43 Year
  Sex: Male
  Weight: 80 kg

DRUGS (7)
  1. GEODON [Suspect]
     Indication: AGITATION
     Dosage: 40MG   BID   ORAL
     Route: 048
     Dates: start: 20050203, end: 20050207
  2. BUSPIRONE HCL [Concomitant]
  3. ZOLPIDEM TARTRATE [Concomitant]
  4. LITHIUM XR [Concomitant]
  5. CLONAZEPAM [Concomitant]
  6. TIAGIBINE [Concomitant]
  7. BENZTROPINE [Concomitant]

REACTIONS (5)
  - AGITATION [None]
  - ANURIA [None]
  - MUSCLE RIGIDITY [None]
  - NEUROLEPTIC MALIGNANT SYNDROME [None]
  - RHABDOMYOLYSIS [None]
